FAERS Safety Report 5734410-7 (Version None)
Quarter: 2008Q2

REPORT INFORMATION
  Report Type: 
  Country: None (occurrence: None)
  Receive Date: 20080508
  Receipt Date: 20080430
  Transmission Date: 20081010
  Serious: Yes (Other)
  Sender: FDA-Public Use
  Company Number: A0725742A

PATIENT
  Age: 44 Year
  Sex: Female

DRUGS (1)
  1. SODIUM FLUORIDE TOOTHPASTE (SODIUM (FLUORIDE) (AQUAFRESH) [Suspect]
     Indication: DRUG USE FOR UNKNOWN INDICATION
     Dosage: DENTAL
     Route: 004

REACTIONS (1)
  - ASTHMA [None]
